FAERS Safety Report 4932838-6 (Version None)
Quarter: 2006Q1

REPORT INFORMATION
  Report Type: 
  Country: None (occurrence: None)
  Receive Date: 20060302
  Receipt Date: 20060302
  Transmission Date: 20060701
  Serious: No
  Sender: FDA-Public Use
  Company Number: None

PATIENT
  Age: 24 Year
  Sex: Female
  Weight: 58.9676 kg

DRUGS (2)
  1. DEPO-PROVERA [Suspect]
     Indication: ANAEMIA
     Dosage: 1 SHOT EVERY 3 MONTHS
     Dates: start: 20000308, end: 20050207
  2. DEPO-PROVERA [Suspect]
     Indication: PREGNANCY
     Dosage: 1 SHOT EVERY 3 MONTHS
     Dates: start: 20000308, end: 20050207

REACTIONS (1)
  - BONE DENSITY DECREASED [None]
